FAERS Safety Report 6046488-4 (Version None)
Quarter: 2009Q1

REPORT INFORMATION
  Report Type: 
  Country: None (occurrence: None)
  Receive Date: 20090122
  Receipt Date: 20081222
  Transmission Date: 20090719
  Serious: No
  Sender: FDA-Public Use
  Company Number: US-BAYER-200841635NA

PATIENT
  Age: 26 Year
  Sex: Female
  Weight: 136 kg

DRUGS (1)
  1. MIRENA [Suspect]
     Indication: CONTRACEPTION
     Route: 015
     Dates: start: 20081212, end: 20081219

REACTIONS (1)
  - IUCD COMPLICATION [None]
